FAERS Safety Report 20211253 (Version 1)
Quarter: 2021Q4

REPORT INFORMATION
  Report Type: Spontaneous
  Country: CA (occurrence: CA)
  Receive Date: 20211221
  Receipt Date: 20211221
  Transmission Date: 20220304
  Serious: Yes (Hospitalization)
  Sender: FDA-Public Use
  Company Number: CA-TEVA-2021-CA-1991090

PATIENT
  Age: 64 Year
  Sex: Female

DRUGS (1)
  1. RAMIPRIL [Suspect]
     Active Substance: RAMIPRIL
     Route: 065

REACTIONS (4)
  - Acute kidney injury [Unknown]
  - Dizziness [Unknown]
  - Hypotension [Unknown]
  - Loss of consciousness [Unknown]
